FAERS Safety Report 8113588-4 (Version None)
Quarter: 2011Q4

REPORT INFORMATION
  Report Type: 
  Country: None (occurrence: None)
  Receive Date: 20111227
  Receipt Date: 20111028
  Transmission Date: 20120403
  Serious: Yes (Other)
  Sender: FDA-Public Use
  Company Number: PHEH2011US02978

PATIENT
  Age: 47 Year
  Sex: Male

DRUGS (11)
  1. PRAMIPEXOLE DIHYCHLLORIDE [Concomitant]
  2. VITAMIN D [Concomitant]
  3. LORATADINE [Concomitant]
  4. ASPIRIN [Concomitant]
  5. ACYCLOVIR [Concomitant]
  6. FISH OIL [Concomitant]
  7. GILENYA [Suspect]
     Indication: MULTIPLE SCLEROSIS
     Dosage: 0.5 MG, DAILY
     Dates: start: 20110331, end: 20110825
  8. MOMETASONE FUROATE [Concomitant]
  9. ASCORBIC ACID [Concomitant]
  10. CALCIUM [Concomitant]
  11. VITAMIN B12 [Concomitant]

REACTIONS (2)
  - MACULAR OEDEMA [None]
  - METAMORPHOPSIA [None]
